FAERS Safety Report 25401927 (Version 2)
Quarter: 2025Q2

REPORT INFORMATION
  Report Type: Spontaneous
  Country: BR (occurrence: BR)
  Receive Date: 20250605
  Receipt Date: 20250627
  Transmission Date: 20250716
  Serious: Yes (Death, Other)
  Sender: VERTEX
  Company Number: BR-VERTEX PHARMACEUTICALS-2025-009155

PATIENT
  Sex: Male

DRUGS (1)
  1. ELEXACAFTOR\IVACAFTOR\TEZACAFTOR [Suspect]
     Active Substance: ELEXACAFTOR\IVACAFTOR\TEZACAFTOR
     Indication: Cystic fibrosis
     Route: 048
     Dates: start: 2024, end: 2025

REACTIONS (3)
  - Lung disorder [Unknown]
  - Treatment noncompliance [Unknown]
  - Cystic fibrosis lung [Fatal]

NARRATIVE: CASE EVENT DATE: 20250101
